FAERS Safety Report 10861568 (Version 1)
Quarter: 2015Q1

REPORT INFORMATION
  Report Type: Report from Study
  Country: JP (occurrence: JP)
  Receive Date: 20150224
  Receipt Date: 20150224
  Transmission Date: 20150721
  Serious: Yes (Hospitalization)
  Sender: FDA-Public Use
  Company Number: JP-EISAI MEDICAL RESEARCH-EC-2015-004258

PATIENT
  Age: 83 Year
  Sex: Male

DRUGS (6)
  1. ARICEPT [Suspect]
     Active Substance: DONEPEZIL HYDROCHLORIDE
     Indication: DEMENTIA ALZHEIMER^S TYPE
     Route: 048
     Dates: start: 20140225, end: 20140504
  2. MEMARY [Suspect]
     Active Substance: MEMANTINE HYDROCHLORIDE
     Route: 048
     Dates: start: 20140304, end: 20140310
  3. MEMARY [Suspect]
     Active Substance: MEMANTINE HYDROCHLORIDE
     Indication: DEMENTIA ALZHEIMER^S TYPE
     Route: 048
     Dates: start: 20140225, end: 20140303
  4. MEMARY [Suspect]
     Active Substance: MEMANTINE HYDROCHLORIDE
     Route: 048
     Dates: start: 20140318, end: 20140504
  5. SULPIRIDE [Concomitant]
     Active Substance: SULPIRIDE
  6. MEMARY [Suspect]
     Active Substance: MEMANTINE HYDROCHLORIDE
     Route: 048
     Dates: start: 20140311, end: 20140317

REACTIONS (1)
  - Depressed level of consciousness [Unknown]

NARRATIVE: CASE EVENT DATE: 20140503
